FAERS Safety Report 9171206 (Version 1)
Quarter: 2013Q1

REPORT INFORMATION
  Report Type: Spontaneous
  Country: US (occurrence: US)
  Receive Date: 20130319
  Receipt Date: 20130319
  Transmission Date: 20140127
  Serious: Yes (Other)
  Sender: FDA-Public Use
  Company Number: US-PFIZER INC-2013088544

PATIENT
  Age: 52 Year
  Sex: Male

DRUGS (1)
  1. NORVASC [Suspect]
     Dosage: 5 MG, 2X/DAY

REACTIONS (3)
  - Haemorrhagic stroke [Unknown]
  - Paralysis [Unknown]
  - Delirium [Unknown]
